FAERS Safety Report 6070853-2 (Version None)
Quarter: 2009Q1

REPORT INFORMATION
  Report Type: 
  Country: None (occurrence: None)
  Receive Date: 20090209
  Receipt Date: 20081001
  Transmission Date: 20090719
  Serious: No
  Sender: FDA-Public Use
  Company Number: A0750063A

PATIENT
  Age: 27 Year
  Sex: Female

DRUGS (2)
  1. PAXIL [Suspect]
     Indication: ANXIETY DISORDER
     Dosage: 50MG PER DAY
     Route: 048
     Dates: start: 19960101, end: 20080926
  2. METFORMIN HCL [Concomitant]

REACTIONS (6)
  - DRUG EXPOSURE DURING PREGNANCY [None]
  - IRRITABILITY [None]
  - LIVE BIRTH [None]
  - NIGHTMARE [None]
  - VERTIGO [None]
  - WITHDRAWAL SYNDROME [None]
